FAERS Safety Report 9409215 (Version 1)
Quarter: 2013Q2

REPORT INFORMATION
  Report Type: Spontaneous
  Country: FR (occurrence: None)
  Receive Date: 20130429
  Receipt Date: 20130429
  Transmission Date: 20140414
  Serious: Yes (Other)
  Sender: FDA-Public Use
  Company Number: FR-20120341

PATIENT
  Age: 76 Year
  Sex: Male

DRUGS (4)
  1. DOTAREM [Suspect]
     Indication: NUCLEAR MAGNETIC RESONANCE IMAGING
     Route: 042
     Dates: start: 20121207, end: 20121207
  2. DEROXAT (PAROXETINE) (PAROXETINE) [Concomitant]
  3. TAHOR (ATORVASTATINE) (ATORVASTATINE) [Concomitant]
  4. ADIPRA SOLASTAR (INSULIN GLUISINE) (INSULIN GLUISINE) [Concomitant]

REACTIONS (6)
  - Type I hypersensitivity [None]
  - Vision blurred [None]
  - Headache [None]
  - Eye swelling [None]
  - Nausea [None]
  - Ocular hyperaemia [None]
